FAERS Safety Report 7622187-X (Version None)
Quarter: 2011Q3

REPORT INFORMATION
  Report Type: 
  Country: None (occurrence: None)
  Receive Date: 20110720
  Receipt Date: 20110531
  Transmission Date: 20111222
  Serious: Yes (Hospitalization)
  Sender: FDA-Public Use
  Company Number: US-BAYER-200943221NA

PATIENT
  Age: 36 Year
  Sex: Female
  Weight: 73 kg

DRUGS (25)
  1. ZOLPIDEM [Concomitant]
  2. AVANDARYL [Concomitant]
  3. YAZ [Suspect]
     Route: 048
     Dates: start: 20080202, end: 20080801
  4. KLONOPIN [Concomitant]
     Dates: start: 20030101
  5. EFFEXOR [Concomitant]
  6. ZETIA [Concomitant]
     Dates: end: 20081101
  7. MIRTAZAPINE [Concomitant]
  8. ASPIRIN [Concomitant]
     Dates: end: 20081101
  9. LEXAPRO [Concomitant]
     Dates: start: 20030101
  10. CLONAZEPAM [Concomitant]
  11. SIMVASTATIN [Concomitant]
  12. STATIN [Concomitant]
     Dates: end: 20081115
  13. IMITREX [Concomitant]
  14. PAROXETINE HCL [Concomitant]
  15. ROZEREM [Concomitant]
  16. YASMIN [Suspect]
     Dosage: UNK
     Route: 048
     Dates: start: 20080202, end: 20080718
  17. IBUPROFEN [Concomitant]
     Dates: start: 19900101
  18. CYCLOBENAZPRINE [Concomitant]
  19. LEVOTHYROXINE SODIUM [Concomitant]
  20. JANUVIA [Concomitant]
     Dates: end: 20081101
  21. BLOOD PRESSURE MEDICATION (NOS) [Concomitant]
     Dates: start: 20070101
  22. METFORMIN HCL [Concomitant]
     Dates: end: 20081101
  23. PENICILLIN [Concomitant]
  24. VYTORIN [Concomitant]
  25. YAZ [Suspect]
     Route: 048
     Dates: start: 20070501, end: 20071101

REACTIONS (10)
  - HAEMORRHAGIC CEREBRAL INFARCTION [None]
  - BALANCE DISORDER [None]
  - HEMIPARESIS [None]
  - DYSPHAGIA [None]
  - DIPLOPIA [None]
  - NAUSEA [None]
  - DIZZINESS [None]
  - PHOTOPHOBIA [None]
  - CEREBELLAR HAEMORRHAGE [None]
  - HEADACHE [None]
